FAERS Safety Report 16068028 (Version 3)
Quarter: 2019Q3

REPORT INFORMATION
  Report Type: Spontaneous
  Country: DE (occurrence: DE)
  Receive Date: 20190313
  Receipt Date: 20190730
  Transmission Date: 20191004
  Serious: Yes (Hospitalization, Other)
  Sender: FDA-Public Use
  Company Number: DE-MYLANLABS-2019M1023118

PATIENT
  Age: 12 Year
  Sex: Female

DRUGS (3)
  1. ASPIRIN. [Concomitant]
     Active Substance: ASPIRIN
     Indication: PRODUCT USED FOR UNKNOWN INDICATION
     Dosage: UNK
     Route: 065
  2. AMITRIPTYLINE COX [Concomitant]
     Indication: PRODUCT USED FOR UNKNOWN INDICATION
     Dosage: UNK
     Route: 065
  3. BACLOFEN. [Suspect]
     Active Substance: BACLOFEN
     Indication: PRODUCT USED FOR UNKNOWN INDICATION
     Dosage: UNK
     Route: 065

REACTIONS (12)
  - Loss of consciousness [Recovered/Resolved]
  - Encephalitis [Recovered/Resolved]
  - Brain oedema [Recovered/Resolved]
  - Visual impairment [Recovered/Resolved]
  - Blood creatine phosphokinase increased [Unknown]
  - Toxicity to various agents [Recovered/Resolved]
  - Electroencephalogram abnormal [Recovered/Resolved]
  - Sinus bradycardia [Recovered/Resolved]
  - Coma [Recovered/Resolved]
  - Accidental overdose [Unknown]
  - Drug abuse [Unknown]
  - Cold sweat [Recovered/Resolved]
